FAERS Safety Report 13826243 (Version 2)
Quarter: 2017Q3

REPORT INFORMATION
  Report Type: Not Available
  Country: None (occurrence: US)
  Receive Date: 20170802
  Receipt Date: 20170802
  Transmission Date: 20171127
  Serious: No
  Sender: FDA-Public Use
  Company Number: US-AKORN-53343

PATIENT
  Sex: Female

DRUGS (1)
  1. HYDROCORTISONE AND ACETIC ACID OTIC SOLUTION [Suspect]
     Active Substance: ACETIC ACID\HYDROCORTISONE

REACTIONS (3)
  - Dermatitis [None]
  - Ear swelling [None]
  - Otorrhoea [None]
